FAERS Safety Report 8625526-6 (Version None)
Quarter: 2012Q3

REPORT INFORMATION
  Report Type: 
  Country: None (occurrence: None)
  Receive Date: 20120827
  Receipt Date: 20120815
  Transmission Date: 20120928
  Serious: Yes (Other)
  Sender: FDA-Public Use
  Company Number: CA-ROCHE-1042527

PATIENT
  Sex: Female

DRUGS (6)
  1. PREDNISONE TAB [Concomitant]
  2. SYMBICORT [Concomitant]
  3. SINGULAIR [Concomitant]
  4. XOLAIR [Suspect]
     Indication: ASTHMA
     Route: 058
     Dates: start: 20120106
  5. VENTOLIN [Concomitant]
  6. REACTINE (CANADA) [Concomitant]

REACTIONS (7)
  - NASOPHARYNGITIS [None]
  - DYSPNOEA [None]
  - STAPHYLOCOCCAL ABSCESS [None]
  - WHEEZING [None]
  - CHEST DISCOMFORT [None]
  - NASAL CONGESTION [None]
  - HYPERSENSITIVITY [None]
